FAERS Safety Report 9188565 (Version 2)
Quarter: 2013Q2

REPORT INFORMATION
  Report Type: Report from Study
  Country: US (occurrence: US)
  Receive Date: 20130325
  Receipt Date: 20130404
  Transmission Date: 20140414
  Serious: Yes (Hospitalization)
  Sender: FDA-Public Use
  Company Number: US-ACTELION-A-NJ2013-81007

PATIENT
  Age: 76 Year
  Sex: Male

DRUGS (2)
  1. VELETRI [Suspect]
     Indication: PULMONARY ARTERIAL HYPERTENSION
     Dosage: 28.68 NG/KG, PER MIN
     Route: 041
     Dates: start: 20110314
  2. SILDENAFIL [Concomitant]

REACTIONS (6)
  - Bladder cancer [Unknown]
  - Bladder operation [Unknown]
  - Haemoglobin decreased [Unknown]
  - Dizziness [Unknown]
  - Flushing [Unknown]
  - Diarrhoea [Unknown]
